FAERS Safety Report 23819970 (Version 1)
Quarter: 2024Q2

REPORT INFORMATION
  Report Type: Spontaneous
  Country: US (occurrence: US)
  Receive Date: 20240506
  Receipt Date: 20240506
  Transmission Date: 20240716
  Serious: Yes (Hospitalization)
  Sender: FDA-Public Use
  Company Number: US-DRL-USA-LIT/USA/24/0006665

PATIENT
  Age: 14 Month
  Sex: Male

DRUGS (2)
  1. CLONIDINE [Suspect]
     Active Substance: CLONIDINE
     Indication: Feeding intolerance
  2. GABAPENTIN [Concomitant]
     Active Substance: GABAPENTIN
     Indication: Feeding intolerance

REACTIONS (1)
  - Drug ineffective for unapproved indication [Unknown]
